FAERS Safety Report 17406957 (Version 1)
Quarter: 2020Q1

REPORT INFORMATION
  Report Type: Spontaneous
  Country: US (occurrence: US)
  Receive Date: 20200211
  Receipt Date: 20200211
  Transmission Date: 20200409
  Serious: Yes (Life-Threatening)
  Sender: FDA-Public Use
  Company Number: None

PATIENT
  Age: 39 Year
  Sex: Male

DRUGS (2)
  1. TOCILIZUMAB. [Suspect]
     Active Substance: TOCILIZUMAB
  2. AXICABTAGENE CILOLEUCEL [Suspect]
     Active Substance: AXICABTAGENE CILOLEUCEL

REACTIONS (10)
  - Cytokine release syndrome [None]
  - Dizziness [None]
  - Tachycardia [None]
  - Neurotoxicity [None]
  - Lethargy [None]
  - Lymphocyte adoptive therapy [None]
  - Abdominal pain [None]
  - Aphasia [None]
  - CAR T-cell-related encephalopathy syndrome [None]
  - Somnolence [None]

NARRATIVE: CASE EVENT DATE: 20191223
